FAERS Safety Report 7427207-3 (Version None)
Quarter: 2011Q2

REPORT INFORMATION
  Report Type: 
  Country: None (occurrence: None)
  Receive Date: 20110420
  Receipt Date: 20110414
  Transmission Date: 20111010
  Serious: No
  Sender: FDA-Public Use
  Company Number: US-PFIZER INC-2011082352

PATIENT

DRUGS (1)
  1. ZYVOX [Suspect]
     Dosage: UNK
     Route: 048

REACTIONS (1)
  - DYSPHAGIA [None]
